FAERS Safety Report 7197283-4 (Version None)
Quarter: 2010Q4

REPORT INFORMATION
  Report Type: 
  Country: None (occurrence: None)
  Receive Date: 20101226
  Receipt Date: 20101221
  Transmission Date: 20110411
  Serious: Yes (Other)
  Sender: FDA-Public Use
  Company Number: IN-BRISTOL-MYERS SQUIBB COMPANY-15455322

PATIENT
  Sex: Male

DRUGS (2)
  1. BARACLUDE [Suspect]
     Indication: HIV INFECTION
  2. GANCICLOVIR [Suspect]
     Indication: HIV INFECTION

REACTIONS (1)
  - BONE MARROW FAILURE [None]
